FAERS Safety Report 13080159 (Version 5)
Quarter: 2017Q2

REPORT INFORMATION
  Report Type: Spontaneous
  Country: JP (occurrence: JP)
  Receive Date: 20170103
  Receipt Date: 20170406
  Transmission Date: 20170830
  Serious: Yes (Death, Other)
  Sender: FDA-Public Use
  Company Number: JP-PFIZER INC-2016572019

PATIENT
  Age: 98 Year
  Sex: Female
  Weight: 31 kg

DRUGS (3)
  1. NOVASTAN [Suspect]
     Active Substance: ARGATROBAN
     Indication: CEREBRAL INFARCTION
     Dosage: 60 MG, 1X/DAY, (SIX VIALS )
     Route: 041
     Dates: start: 20161123, end: 20161124
  2. BAYASPIRIN [Suspect]
     Active Substance: ASPIRIN
     Indication: CEREBRAL INFARCTION
     Dosage: 100 MG, 1X/DAY
     Route: 048
     Dates: start: 20161115, end: 20161121
  3. RADICUT [Suspect]
     Active Substance: EDARAVONE
     Indication: CEREBRAL INFARCTION
     Dosage: 60 MG, 1X/DAY
     Route: 041
     Dates: start: 20161115, end: 20161125

REACTIONS (4)
  - Haemorrhagic cerebral infarction [Fatal]
  - Cerebral infarction [Unknown]
  - Condition aggravated [Unknown]
  - Mouth haemorrhage [Not Recovered/Not Resolved]

NARRATIVE: CASE EVENT DATE: 20161122
